FAERS Safety Report 7902936-3 (Version None)
Quarter: 2011Q4

REPORT INFORMATION
  Report Type: 
  Country: None (occurrence: None)
  Receive Date: 20111103
  Receipt Date: 20111025
  Transmission Date: 20120403
  Serious: Yes (Hospitalization)
  Sender: FDA-Public Use
  Company Number: B0760072A

PATIENT
  Age: 72 Year
  Sex: Female

DRUGS (1)
  1. VALACYCLOVIR [Suspect]
     Indication: HERPES VIRUS INFECTION
     Dosage: 1000 MG / THREE TIMES PER DAY / ORAL
     Route: 048

REACTIONS (6)
  - HYPOAESTHESIA [None]
  - ATAXIA [None]
  - DEPRESSED LEVEL OF CONSCIOUSNESS [None]
  - APHASIA [None]
  - HALLUCINATION, VISUAL [None]
  - NEUROTOXICITY [None]
